FAERS Safety Report 23580192 (Version 1)
Quarter: 2024Q1

REPORT INFORMATION
  Report Type: Spontaneous
  Country: US (occurrence: None)
  Receive Date: 20240228
  Receipt Date: 20240228
  Transmission Date: 20240410
  Serious: Yes (Hospitalization, Disabling)
  Sender: FDA-Public Use
  Company Number: None

PATIENT
  Age: 62 Year
  Sex: Male

DRUGS (3)
  1. RISPERDAL [Suspect]
     Active Substance: RISPERIDONE
     Indication: Schizophrenia
     Dosage: FREQUENCY : TWICE A DAY;?STRENGTH: STARTED LOW DOSE TITRATED TO 3 MG, FOR BID
     Route: 048
     Dates: start: 20160108, end: 20160204
  2. ABILIFY [Concomitant]
     Active Substance: ARIPIPRAZOLE
  3. TYLENOL [Concomitant]
     Active Substance: ACETAMINOPHEN

REACTIONS (5)
  - Internal hernia [None]
  - Vertigo [None]
  - Dizziness [None]
  - Balance disorder [None]
  - Pain [None]

NARRATIVE: CASE EVENT DATE: 20160101
